FAERS Safety Report 12802868 (Version 1)
Quarter: 2016Q4

REPORT INFORMATION
  Report Type: Report from Study
  Country: US (occurrence: US)
  Receive Date: 20161003
  Receipt Date: 20161003
  Transmission Date: 20170207
  Serious: No
  Sender: FDA-Public Use
  Company Number: GXBR2016US003031

PATIENT
  Age: 13 Year
  Sex: Male

DRUGS (1)
  1. OMNITROPE [Suspect]
     Active Substance: SOMATROPIN
     Indication: HYPOPITUITARISM
     Dosage: 1.15 MG, QD
     Route: 065
     Dates: start: 20160924

REACTIONS (3)
  - Ear infection [Not Recovered/Not Resolved]
  - Headache [Not Recovered/Not Resolved]
  - Incorrect dose administered [Recovered/Resolved]

NARRATIVE: CASE EVENT DATE: 20160925
